FAERS Safety Report 4500074-3 (Version None)
Quarter: 2004Q4

REPORT INFORMATION
  Report Type: 
  Country: None (occurrence: None)
  Receive Date: 20041110
  Receipt Date: 20041101
  Transmission Date: 20050328
  Serious: Yes (Other)
  Sender: FDA-Public Use
  Company Number: 003500

PATIENT
  Sex: Female

DRUGS (3)
  1. MEDROXYPROGESTERONE ACETATE [Suspect]
  2. PREMARIN [Suspect]
  3. PREMPRO [Suspect]

REACTIONS (1)
  - BREAST CANCER FEMALE [None]
